FAERS Safety Report 16382081 (Version 1)
Quarter: 2019Q2

REPORT INFORMATION
  Report Type: Spontaneous
  Country: US (occurrence: US)
  Receive Date: 20190425
  Receipt Date: 20190425
  Transmission Date: 20190711
  Serious: No
  Sender: FDA-Public Use
  Company Number: None

PATIENT
  Age: 60 Year
  Sex: Male
  Weight: 112 kg

DRUGS (1)
  1. SULFAMETHOXAZOLE/TRIMETHOPRIM [Suspect]
     Active Substance: SULFAMETHOXAZOLE\TRIMETHOPRIM
     Indication: URINARY TRACT INFECTION
     Route: 048
     Dates: start: 20190209, end: 20190211

REACTIONS (9)
  - Stevens-Johnson syndrome [None]
  - Urticaria [None]
  - Glossodynia [None]
  - Pruritus [None]
  - Oral pain [None]
  - Rash [None]
  - Rash pustular [None]
  - Paraesthesia oral [None]
  - Oropharyngeal pain [None]

NARRATIVE: CASE EVENT DATE: 20190210
